FAERS Safety Report 4350569-0 (Version None)
Quarter: 2004Q2

REPORT INFORMATION
  Report Type: 
  Country: None (occurrence: None)
  Receive Date: 20040427
  Receipt Date: 20040413
  Transmission Date: 20050107
  Serious: Yes (Other)
  Sender: FDA-Public Use
  Company Number: ATO-04-0374

PATIENT
  Age: 22 Year
  Sex: Male

DRUGS (2)
  1. TRISENOX [Suspect]
     Indication: ACUTE PROMYELOCYTIC LEUKAEMIA
     Dosage: IVI
     Route: 042
     Dates: start: 20031201, end: 20031201
  2. TRETINOIN [Suspect]

REACTIONS (2)
  - ARRHYTHMIA [None]
  - SYNCOPE [None]
